FAERS Safety Report 8313439-9 (Version None)
Quarter: 2012Q2

REPORT INFORMATION
  Report Type: 
  Country: None (occurrence: None)
  Receive Date: 20120426
  Receipt Date: 20120423
  Transmission Date: 20120825
  Serious: Yes (Death)
  Sender: FDA-Public Use
  Company Number: PHHY2011JP92898

PATIENT
  Age: 46 Year
  Sex: Female

DRUGS (3)
  1. EXJADE [Suspect]
     Dosage: 1000 MG, DAILY
     Route: 048
     Dates: start: 20110601, end: 20110611
  2. EXJADE [Suspect]
     Indication: IRON OVERLOAD
     Dosage: 375 MG, DAILY
     Route: 048
     Dates: start: 20110510
  3. PRIMOBOLAN-DEPOT INJ [Concomitant]

REACTIONS (2)
  - DISEASE PROGRESSION [None]
  - ABDOMINAL DISTENSION [None]
